FAERS Safety Report 9447962 (Version 1)
Quarter: 2013Q3

REPORT INFORMATION
  Report Type: Report from Study
  Country: CA (occurrence: CA)
  Receive Date: 20130808
  Receipt Date: 20130808
  Transmission Date: 20140515
  Serious: Yes (Other)
  Sender: FDA-Public Use
  Company Number: PHHY2013CA084920

PATIENT
  Sex: Female

DRUGS (4)
  1. ACLASTA [Suspect]
     Indication: OSTEOPOROSIS
     Dosage: UNK
     Route: 042
     Dates: start: 20090818
  2. ACLASTA [Suspect]
     Dosage: UNK
     Route: 042
     Dates: start: 20100817
  3. ACLASTA [Suspect]
     Dosage: UNK
     Route: 042
     Dates: start: 20110902
  4. ACLASTA [Suspect]
     Dosage: UNK
     Route: 042
     Dates: start: 20120907

REACTIONS (1)
  - Dementia [Unknown]
